FAERS Safety Report 8552372-4 (Version None)
Quarter: 2012Q3

REPORT INFORMATION
  Report Type: 
  Country: None (occurrence: None)
  Receive Date: 20120731
  Receipt Date: 20120718
  Transmission Date: 20120928
  Serious: Yes (Hospitalization)
  Sender: FDA-Public Use
  Company Number: FR-ACCORD-014159

PATIENT
  Age: 66 Year
  Sex: Female

DRUGS (2)
  1. ETOPOSIDE [Suspect]
     Indication: SMALL CELL LUNG CANCER METASTATIC
  2. CISPLATIN [Suspect]
     Indication: SMALL CELL LUNG CANCER METASTATIC

REACTIONS (2)
  - STAPHYLOCOCCAL BACTERAEMIA [None]
  - PNEUMOCYSTIS JIROVECI INFECTION [None]
